FAERS Safety Report 7703286-0 (Version None)
Quarter: 2011Q3

REPORT INFORMATION
  Report Type: 
  Country: None (occurrence: None)
  Receive Date: 20110817
  Receipt Date: 20110803
  Transmission Date: 20111222
  Serious: Yes (Other)
  Sender: FDA-Public Use
  Company Number: 2011GB0229

PATIENT
  Age: 29 Year
  Sex: Female
  Weight: 72 kg

DRUGS (21)
  1. ENOXAPARIN SODIUM [Concomitant]
  2. CHLORHEXIDINE GLUCONATE [Concomitant]
  3. ACYCLOVIR [Concomitant]
  4. ALLOPURINOL [Concomitant]
  5. TEICOPLANIN (TEICOPLANIN) [Concomitant]
  6. BENZOCAINE + CODEIN MOUTHWASH (BENZOCAINE, CODEIN) [Concomitant]
  7. PALIFERMIN (PALIFERMIN) [Suspect]
     Indication: STOMATITIS
     Dosage: (4, 3 MG, PER PROTOCOL)
     Route: 042
     Dates: start: 20110717, end: 20110730
  8. PALIFERMIN (PALIFERMIN) [Suspect]
     Indication: PROPHYLAXIS
     Dosage: (4, 3 MG, PER PROTOCOL)
     Route: 042
     Dates: start: 20110717, end: 20110730
  9. TAZOCIN (TAZOCIN) [Concomitant]
  10. MYSTATIN (NYSTATIN0 [Concomitant]
  11. NORETHISTERONE (NORETHISTERONE) [Concomitant]
  12. DIFFLAM (BENZYDAMINE HYDROCHLORIDE) [Concomitant]
  13. ONCASPAR [Suspect]
     Dosage: (1725 IU, D4+18)
     Route: 042
     Dates: start: 20110321, end: 20110404
  14. ONDANSETRON [Concomitant]
  15. CYCLOSPORINE [Concomitant]
  16. ACETAMINOPHEN [Concomitant]
  17. INTRACONAZOLE (ITRACONAZOLE) [Concomitant]
  18. CODEINE SULFATE [Concomitant]
  19. PIPERACILLIN AND TAZOBACTAM [Concomitant]
  20. CYCLICINE (CYCLICINE) [Concomitant]
  21. MORPHINE SULPHATE (MORPHINE SULPHATE) [Concomitant]

REACTIONS (3)
  - BLOOD BILIRUBIN INCREASED [None]
  - STEM CELL TRANSPLANT [None]
  - PYREXIA [None]
